FAERS Safety Report 20564466 (Version 3)
Quarter: 2022Q4

REPORT INFORMATION
  Report Type: Other
  Country: CA (occurrence: None)
  Receive Date: 20220308
  Receipt Date: 20221031
  Transmission Date: 20230113
  Serious: Yes (Other)
  Sender: FDA-Public Use
  Company Number: CA-ROCHE-2985045

PATIENT
  Age: 77 Year
  Sex: Male
  Weight: 83.9 kg

DRUGS (21)
  1. RITUXAN [Suspect]
     Active Substance: RITUXIMAB
     Indication: Rheumatoid arthritis
     Dosage: DAY 1, DAY 15, ON HOLD UNTIL JANUARY 2022 JUL5,2021
     Route: 041
     Dates: start: 20120823
  2. ACETAMINOPHEN [Concomitant]
     Active Substance: ACETAMINOPHEN
     Indication: Premedication
     Dosage: DRUG DOSE FIRST ADMINISTERED IS 1000 IU INTERNATIONAL UNIT(S)MOREDOSAGEINFO IS 1000 UNITS CAPSULE
     Route: 048
     Dates: start: 20120823
  3. ACTONEL [Concomitant]
     Active Substance: RISEDRONATE SODIUM
  4. ARAVA [Concomitant]
     Active Substance: LEFLUNOMIDE
     Route: 048
  5. ASPIRIN [Concomitant]
     Active Substance: ASPIRIN
     Route: 048
  6. ATORVASTATIN [Concomitant]
     Active Substance: ATORVASTATIN
  7. BISOPROLOL [Concomitant]
     Active Substance: BISOPROLOL
     Route: 048
  8. COLCHICINE [Concomitant]
     Active Substance: COLCHICINE
  9. PERINDOPRIL [Concomitant]
     Active Substance: PERINDOPRIL
     Route: 048
  10. DIPHENHYDRAMINE HYDROCHLORIDE [Concomitant]
     Active Substance: DIPHENHYDRAMINE HYDROCHLORIDE
     Indication: Premedication
     Route: 048
  11. INSULIN ASPART [Concomitant]
     Active Substance: INSULIN ASPART
  12. INSULIN GLARGINE [Concomitant]
     Active Substance: INSULIN GLARGINE
  13. LASIX [Concomitant]
     Active Substance: FUROSEMIDE
  14. LIPITOR [Concomitant]
     Active Substance: ATORVASTATIN CALCIUM
  15. METHYLPREDNISOLONE [Concomitant]
     Active Substance: METHYLPREDNISOLONE
  16. NITROLINGUAL [Concomitant]
     Active Substance: NITROGLYCERIN
  17. PANTOPRAZOLE SODIUM [Concomitant]
     Active Substance: PANTOPRAZOLE SODIUM
  18. TYLENOL [Concomitant]
     Active Substance: ACETAMINOPHEN
  19. PLAQUENIL [Concomitant]
     Active Substance: HYDROXYCHLOROQUINE SULFATE
  20. TYLENOL EXTRA STRENGTH [Concomitant]
     Active Substance: ACETAMINOPHEN
  21. VITAMIN D3 [Concomitant]
     Active Substance: CHOLECALCIFEROL

REACTIONS (4)
  - Upper limb fracture [Unknown]
  - COVID-19 [Recovered/Resolved]
  - Fall [Unknown]
  - Bone density decreased [Unknown]

NARRATIVE: CASE EVENT DATE: 20211201
